FAERS Safety Report 10986028 (Version 2)
Quarter: 2015Q2

REPORT INFORMATION
  Report Type: Report from Study
  Country: RU (occurrence: RU)
  Receive Date: 20150404
  Receipt Date: 20150414
  Transmission Date: 20150821
  Serious: Yes (Other)
  Sender: FDA-Public Use
  Company Number: PHHY2015RU038693

PATIENT
  Age: 60 Year
  Sex: Female

DRUGS (1)
  1. ACLASTA [Suspect]
     Active Substance: ZOLEDRONIC ACID
     Indication: OSTEOPENIA
     Dosage: UNK
     Route: 041
     Dates: start: 2012

REACTIONS (3)
  - Radius fracture [Recovered/Resolved]
  - Product use issue [Unknown]
  - Injury [Unknown]

NARRATIVE: CASE EVENT DATE: 20150313
